FAERS Safety Report 15021903 (Version 1)
Quarter: 2018Q2

REPORT INFORMATION
  Report Type: Spontaneous
  Country: US (occurrence: US)
  Receive Date: 20180601
  Receipt Date: 20180601
  Transmission Date: 20180711
  Serious: Yes (Hospitalization)
  Sender: FDA-Public Use
  Company Number: None

PATIENT
  Age: 57 Year
  Sex: Female
  Weight: 64.2 kg

DRUGS (1)
  1. OFATUMUMAB [Suspect]
     Active Substance: OFATUMUMAB
     Indication: DIFFUSE LARGE B-CELL LYMPHOMA
     Dates: start: 20180516, end: 20180518

REACTIONS (5)
  - Fatigue [None]
  - Pyrexia [None]
  - Chills [None]
  - Blood pressure decreased [None]
  - Arthralgia [None]

NARRATIVE: CASE EVENT DATE: 20180530
